FAERS Safety Report 9158402 (Version 3)
Quarter: 2013Q2

REPORT INFORMATION
  Report Type: Spontaneous
  Country: JP (occurrence: JP)
  Receive Date: 20130312
  Receipt Date: 20130402
  Transmission Date: 20140414
  Serious: Yes (Life-Threatening, Hospitalization)
  Sender: FDA-Public Use
  Company Number: JP-B.I. PHARMACEUTICALS,INC./RIDGEFIELD-2013-BI-06115NB

PATIENT
  Age: 68 Year
  Sex: Male
  Weight: 65.5 kg

DRUGS (8)
  1. PRAZAXA [Suspect]
     Indication: ATRIAL FIBRILLATION
     Dosage: 220 MG
     Route: 048
     Dates: start: 20121210, end: 20130228
  2. AVOLVE [Suspect]
     Indication: PROSTATIC CYST
     Dosage: 0.5 MG
     Route: 048
     Dates: start: 20121207
  3. SUNRYTHM [Concomitant]
     Indication: ATRIAL FIBRILLATION
     Dosage: 100 MG
     Route: 048
     Dates: start: 20121210, end: 20130302
  4. MAINTATE [Concomitant]
     Indication: ATRIAL FIBRILLATION
     Dosage: 2.5 MG
     Route: 048
     Dates: start: 20121210, end: 20130228
  5. NEXIUM [Concomitant]
     Dosage: 20 MG
     Route: 048
     Dates: start: 20121210
  6. MICARDIS [Concomitant]
     Indication: HYPERTENSION
     Dosage: 40 MG
     Route: 048
     Dates: start: 20101210, end: 20130228
  7. MAGMITT [Concomitant]
     Indication: CONSTIPATION
     Dosage: 1980 MG
     Route: 048
     Dates: start: 20130219
  8. ADONA [Concomitant]
     Indication: HAEMORRHAGE
     Dosage: 90 MG
     Route: 048
     Dates: start: 20130221, end: 20130228

REACTIONS (2)
  - Pulmonary embolism [Not Recovered/Not Resolved]
  - Anaemia [Not Recovered/Not Resolved]
